FAERS Safety Report 18054448 (Version 3)
Quarter: 2020Q3

REPORT INFORMATION
  Report Type: Spontaneous
  Country: MX (occurrence: MX)
  Receive Date: 20200722
  Receipt Date: 20200831
  Transmission Date: 20201103
  Serious: Yes (Life-Threatening, Other)
  Sender: FDA-Public Use
  Company Number: MX-SA-2020SA171826

PATIENT

DRUGS (5)
  1. STILNOX CR [Suspect]
     Active Substance: ZOLPIDEM TARTRATE
     Indication: HALLUCINATION
  2. FLUVOXAMINE [Suspect]
     Active Substance: FLUVOXAMINE
     Dosage: UNK
     Route: 065
  3. STILNOX CR [Suspect]
     Active Substance: ZOLPIDEM TARTRATE
     Indication: SLEEP APNOEA SYNDROME
     Dosage: 1 DF, HS
     Route: 048
     Dates: start: 202002
  4. STILNOX CR [Suspect]
     Active Substance: ZOLPIDEM TARTRATE
     Indication: SLEEP PARALYSIS
     Dosage: 0.5 DF, HS
     Route: 065
  5. QUETIAPINE FUMARATE. [Suspect]
     Active Substance: QUETIAPINE FUMARATE
     Dosage: UNK
     Route: 065

REACTIONS (13)
  - Feeling abnormal [Not Recovered/Not Resolved]
  - Tinnitus [Not Recovered/Not Resolved]
  - Hypertension [Recovered/Resolved]
  - Unevaluable event [Not Recovered/Not Resolved]
  - Delirium [Not Recovered/Not Resolved]
  - Burning sensation [Not Recovered/Not Resolved]
  - Fear [Not Recovered/Not Resolved]
  - Scarlet fever [Recovered/Resolved]
  - Dyspepsia [Not Recovered/Not Resolved]
  - Weight decreased [Not Recovered/Not Resolved]
  - Suicidal ideation [Not Recovered/Not Resolved]
  - Hallucination [Not Recovered/Not Resolved]
  - Tongue disorder [Not Recovered/Not Resolved]
